FAERS Safety Report 7794046-3 (Version None)
Quarter: 2011Q4

REPORT INFORMATION
  Report Type: 
  Country: None (occurrence: None)
  Receive Date: 20111004
  Receipt Date: 20110920
  Transmission Date: 20120403
  Serious: Yes (Hospitalization, Other)
  Sender: FDA-Public Use
  Company Number: FR-TEVA-275010ISR

PATIENT
  Sex: Male

DRUGS (12)
  1. PRAMIPEXOLE DIHYDROCHLORIDE [Concomitant]
  2. AZILECT [Suspect]
     Indication: PARKINSON'S DISEASE
     Dosage: 1 MILLIGRAM;
     Route: 048
     Dates: start: 20100201, end: 20110401
  3. TRUVADA [Concomitant]
     Indication: HIV INFECTION
  4. UTEPLEX [Concomitant]
  5. MODOPAR [Concomitant]
  6. EFAVIRENZ [Concomitant]
     Indication: HIV INFECTION
  7. NORVIR [Interacting]
     Indication: HIV INFECTION
     Route: 048
     Dates: start: 20110201
  8. PREZISTA [Concomitant]
  9. TRIVASTAL [Concomitant]
  10. OLMIFON [Concomitant]
  11. ALPRAZOLAM [Concomitant]
  12. MIANSERIN [Concomitant]

REACTIONS (5)
  - WRIST FRACTURE [None]
  - BALANCE DISORDER [None]
  - DRUG INTERACTION [None]
  - FALL [None]
  - THROMBOCYTOPENIA [None]
